FAERS Safety Report 16595545 (Version 7)
Quarter: 2020Q1

REPORT INFORMATION
  Report Type: Report from Study
  Country: US (occurrence: US)
  Receive Date: 20190719
  Receipt Date: 20200211
  Transmission Date: 20200409
  Serious: Yes (Other)
  Sender: FDA-Public Use
  Company Number: PHEH2019US030059

PATIENT
  Sex: Male
  Weight: 112.11 kg

DRUGS (5)
  1. TREPROSTINIL. [Suspect]
     Active Substance: TREPROSTINIL
     Dosage: 24 NG/KG/MIN, CONTINUOUS
     Route: 042
  2. TREPROSTINIL. [Suspect]
     Active Substance: TREPROSTINIL
     Indication: PULMONARY ARTERIAL HYPERTENSION
     Dosage: 14 NG/KG/MIN, CONTINUOUS
     Route: 042
     Dates: start: 20190709
  3. ADEMPAS [Concomitant]
     Active Substance: RIOCIGUAT
     Indication: PRODUCT USED FOR UNKNOWN INDICATION
     Route: 065
  4. TREPROSTINIL. [Suspect]
     Active Substance: TREPROSTINIL
     Dosage: 30 NG/KG/MIN, CONTINUOUS
     Route: 042
  5. ELIQUIS [Concomitant]
     Active Substance: APIXABAN
     Indication: PRODUCT USED FOR UNKNOWN INDICATION
     Route: 065

REACTIONS (9)
  - Headache [Recovered/Resolved]
  - Asthenia [Unknown]
  - Injection site rash [Unknown]
  - Nausea [Unknown]
  - Taste disorder [Unknown]
  - Weight decreased [Unknown]
  - Injection site haemorrhage [Unknown]
  - Diarrhoea [Recovered/Resolved]
  - Decreased appetite [Unknown]
